FAERS Safety Report 17433855 (Version 1)
Quarter: 2020Q1

REPORT INFORMATION
  Report Type: Report from Study
  Country: None (occurrence: IT)
  Receive Date: 20200219
  Receipt Date: 20200219
  Transmission Date: 20200409
  Serious: Yes (Death)
  Sender: FDA-Public Use
  Company Number: IT-ABBVIE-20K-083-3282415-00

PATIENT
  Age: 66 Year
  Sex: Female

DRUGS (1)
  1. DUODOPA [Suspect]
     Active Substance: CARBIDOPA\LEVODOPA
     Indication: PARKINSON^S DISEASE
     Dosage: MD: 4+3, CR: 2,1 ED: 2,7?20 MG/ML 5 MG/ML
     Route: 050
     Dates: start: 20171003, end: 20200210

REACTIONS (1)
  - Death [Fatal]

NARRATIVE: CASE EVENT DATE: 20200210
